FAERS Safety Report 9914122 (Version 1)
Quarter: 2014Q1

REPORT INFORMATION
  Report Type: Spontaneous
  Country: NL (occurrence: NL)
  Receive Date: 20140220
  Receipt Date: 20140220
  Transmission Date: 20141002
  Serious: Yes (Other)
  Sender: FDA-Public Use
  Company Number: NL-PFIZER INC-2014044297

PATIENT
  Sex: Male

DRUGS (1)
  1. INSPRA [Suspect]
     Dosage: 2 DF, UNK

REACTIONS (4)
  - Suicidal ideation [Unknown]
  - Malaise [Recovered/Resolved]
  - Pallor [Recovered/Resolved]
  - Dizziness [Recovered/Resolved]
